FAERS Safety Report 21984724 (Version 2)
Quarter: 2023Q1

REPORT INFORMATION
  Report Type: Report from Study
  Country: US (occurrence: US)
  Receive Date: 20230213
  Receipt Date: 20230308
  Transmission Date: 20230417
  Serious: Yes (Death, Life-Threatening, Hospitalization, Disabling, Other)
  Sender: FDA-Public Use
  Company Number: US-PFIZER INC-PV202200132571

PATIENT
  Age: 65 Year
  Sex: Male
  Weight: 73.741 kg

DRUGS (9)
  1. ARRY-067 [Suspect]
     Active Substance: ARRY-067
     Indication: Cholangiocarcinoma
     Dosage: 300 MG, 1X/DAY
     Route: 048
     Dates: start: 20221011, end: 20221205
  2. GEMCITABINE HYDROCHLORIDE [Suspect]
     Active Substance: GEMCITABINE HYDROCHLORIDE
     Indication: Cholangiocarcinoma
     Dosage: 1000 MG/M2, (DAYS 1, 8 EVERY 21 DAYS)
     Route: 042
     Dates: start: 20220524, end: 20220926
  3. SPIRONOLACTONE [Concomitant]
     Active Substance: SPIRONOLACTONE
     Indication: Oedema peripheral
     Dosage: 50 MG, 1X/DAY
     Route: 048
     Dates: start: 20221122, end: 20221215
  4. SPIRONOLACTONE [Concomitant]
     Active Substance: SPIRONOLACTONE
     Indication: Ascites
  5. PREDNISONE [Concomitant]
     Active Substance: PREDNISONE
     Indication: Neutrophil count decreased
     Dosage: 60 MG, 1X/DAY
     Route: 048
     Dates: start: 20221216, end: 20221220
  6. PREDNISONE [Concomitant]
     Active Substance: PREDNISONE
     Dosage: 40 MG, 1X/DAY
     Route: 048
     Dates: start: 20221221
  7. SODIUM CHLORIDE [Concomitant]
     Active Substance: SODIUM CHLORIDE
     Indication: Blood creatinine increased
     Dosage: 1 L ONCE
     Route: 042
     Dates: start: 20221220, end: 20221220
  8. ALBUMIN HUMAN [Concomitant]
     Active Substance: ALBUMIN HUMAN
     Indication: Hypoalbuminaemia
     Dosage: 30 G, ONCE
     Route: 042
     Dates: start: 20221215, end: 20221215
  9. FILGRASTIM [Concomitant]
     Active Substance: FILGRASTIM
     Indication: Neutrophil count decreased
     Dosage: 480 UG, 1X/DAY
     Route: 058
     Dates: start: 20221213, end: 20221217

REACTIONS (2)
  - Acute kidney injury [Fatal]
  - Renal-limited thrombotic microangiopathy [Not Recovered/Not Resolved]

NARRATIVE: CASE EVENT DATE: 20221227
